FAERS Safety Report 23936580 (Version 1)
Quarter: 2024Q2

REPORT INFORMATION
  Report Type: Spontaneous
  Country: US (occurrence: US)
  Receive Date: 20240604
  Receipt Date: 20240604
  Transmission Date: 20240716
  Serious: No
  Sender: FDA-Public Use
  Company Number: US-SA-SAC20240531000625

PATIENT
  Sex: Male
  Weight: 109.76 kg

DRUGS (2)
  1. DUPIXENT [Suspect]
     Active Substance: DUPILUMAB
     Indication: Nasal polyps
     Dosage: 300MG EVERY 2 WEEKS
     Route: 058
     Dates: start: 20220715
  2. DILTIAZEM [Concomitant]
     Active Substance: DILTIAZEM
     Dosage: UNK

REACTIONS (2)
  - Sinusitis [Not Recovered/Not Resolved]
  - Hyposmia [Not Recovered/Not Resolved]
